FAERS Safety Report 4434160-3 (Version None)
Quarter: 2004Q3

REPORT INFORMATION
  Report Type: 
  Country: None (occurrence: None)
  Receive Date: 20040826
  Receipt Date: 20040817
  Transmission Date: 20050211
  Serious: Yes (Hospitalization)
  Sender: FDA-Public Use
  Company Number: PHHO2004JP11650

PATIENT
  Age: 80 Year
  Sex: Female
  Weight: 36 kg

DRUGS (2)
  1. DIOVAN [Suspect]
     Dosage: 80 MG, QD
     Route: 048
     Dates: start: 20030611, end: 20030621
  2. 8-HOUR BAYER [Concomitant]
     Indication: TRANSIENT ISCHAEMIC ATTACK

REACTIONS (4)
  - ATAXIA [None]
  - GAIT DISTURBANCE [None]
  - REHABILITATION THERAPY [None]
  - THROMBOTIC STROKE [None]
